FAERS Safety Report 6407506-4 (Version None)
Quarter: 2009Q4

REPORT INFORMATION
  Report Type: 
  Country: None (occurrence: None)
  Receive Date: 20091020
  Receipt Date: 20091009
  Transmission Date: 20100525
  Serious: Yes (Other)
  Sender: FDA-Public Use
  Company Number: US-JNJFOC-20091004490

PATIENT
  Sex: Female

DRUGS (4)
  1. REMICADE [Suspect]
     Route: 042
     Dates: start: 20090401, end: 20090902
  2. REMICADE [Suspect]
     Route: 042
     Dates: start: 20090401, end: 20090902
  3. REMICADE [Suspect]
     Route: 042
     Dates: start: 20090401, end: 20090902
  4. REMICADE [Suspect]
     Indication: CROHN'S DISEASE
     Route: 042
     Dates: start: 20090401, end: 20090902

REACTIONS (1)
  - HEPATIC ENZYME INCREASED [None]
